FAERS Safety Report 5295497-1 (Version None)
Quarter: 2007Q2

REPORT INFORMATION
  Report Type: 
  Country: None (occurrence: None)
  Receive Date: 20070405
  Receipt Date: 20070328
  Transmission Date: 20071010
  Serious: Yes (Death)
  Sender: FDA-Public Use
  Company Number: WAES 0704USA00232

PATIENT
  Age: 91 Year
  Sex: Male

DRUGS (6)
  1. STROMECTOL [Suspect]
     Indication: ACARODERMATITIS
     Dosage: 12 MG/1X PO
     Route: 048
     Dates: start: 20060823, end: 20060823
  2. STROMECTOL [Suspect]
     Indication: ACARODERMATITIS
     Dosage: 12 MG/1X PO
     Route: 048
     Dates: start: 20060906, end: 20060906
  3. DIGOSIN [Concomitant]
  4. EURAX [Concomitant]
  5. LASIX [Concomitant]
  6. SULPERAZON [Concomitant]

REACTIONS (1)
  - PNEUMONIA ASPIRATION [None]
